FAERS Safety Report 18259419 (Version 4)
Quarter: 2021Q1

REPORT INFORMATION
  Report Type: Report from Study
  Country: US (occurrence: US)
  Receive Date: 20200911
  Receipt Date: 20210216
  Transmission Date: 20210419
  Serious: Yes (Hospitalization, Other)
  Sender: FDA-Public Use
  Company Number: US-JNJFOC-20200848885

PATIENT
  Age: 69 Year
  Sex: Male
  Weight: 63.56 kg

DRUGS (4)
  1. SILDENAFIL CITRATE. [Concomitant]
     Active Substance: SILDENAFIL CITRATE
  2. UPTRAVI [Suspect]
     Active Substance: SELEXIPAG
     Indication: PULMONARY ARTERIAL HYPERTENSION
     Route: 048
     Dates: end: 202009
  3. AMLODIPINE [Concomitant]
     Active Substance: AMLODIPINE BESYLATE
  4. MACITENTAN [Suspect]
     Active Substance: MACITENTAN
     Indication: PULMONARY ARTERIAL HYPERTENSION
     Route: 048

REACTIONS (9)
  - Pneumonia aspiration [Unknown]
  - Feeling abnormal [Unknown]
  - Pyrexia [Unknown]
  - Nausea [Unknown]
  - Faeces discoloured [Unknown]
  - Aspiration [Unknown]
  - Diarrhoea [Unknown]
  - Fatigue [Unknown]
  - Listless [Unknown]

NARRATIVE: CASE EVENT DATE: 202009
